FAERS Safety Report 10572808 (Version 2)
Quarter: 2014Q4

REPORT INFORMATION
  Report Type: Spontaneous
  Country: SZ (occurrence: None)
  Receive Date: 20141106
  Receipt Date: 20141121
  Transmission Date: 20150529
  Serious: Yes (Other)
  Sender: FDA-Public Use
  Company Number: 20140701

PATIENT
  Age: 76 Year
  Sex: Female
  Weight: 60 kg

DRUGS (1)
  1. FERINJECT [Suspect]
     Active Substance: FERRIC CARBOXYMALTOSE
     Indication: IRON DEFICIENCY ANAEMIA
     Dosage: 500MG IN 100MLS OVER
     Route: 042
     Dates: start: 20140917

REACTIONS (3)
  - Rash [None]
  - Urticaria [None]
  - Bronchospasm [None]

NARRATIVE: CASE EVENT DATE: 20140917
